FAERS Safety Report 10487064 (Version 1)
Quarter: 2014Q3

REPORT INFORMATION
  Report Type: Spontaneous
  Country: US (occurrence: None)
  Receive Date: 20140908
  Receipt Date: 20140908
  Transmission Date: 20150326
  Serious: Yes (Other)
  Sender: FDA-Public Use
  Company Number: 408739

PATIENT
  Age: 63 Year
  Sex: Male

DRUGS (7)
  1. METFORMIN [Concomitant]
     Active Substance: METFORMIN HYDROCHLORIDE
  2. GLYBURIDE (GLIBENCLAMIDE) [Concomitant]
     Active Substance: GLYBURIDE
  3. VICTOZA [Suspect]
     Active Substance: LIRAGLUTIDE
     Indication: TYPE 2 DIABETES MELLITUS
     Route: 058
     Dates: start: 20140301, end: 20140421
  4. ZOCOR [Concomitant]
     Active Substance: SIMVASTATIN
  5. POTASSIUM (POTASSIUM) [Concomitant]
     Active Substance: POTASSIUM
  6. PROAIR HFA [Concomitant]
     Active Substance: ALBUTEROL SULFATE
  7. ALBUTEROL /00139501/ (SALBUTAMOL) [Concomitant]
     Active Substance: ALBUTEROL

REACTIONS (2)
  - Glucose urine [None]
  - Pancreatitis acute [None]

NARRATIVE: CASE EVENT DATE: 20140421
